FAERS Safety Report 9092078 (Version 1)
Quarter: 2013Q1

REPORT INFORMATION
  Report Type: Report from Study
  Country: US (occurrence: US)
  Receive Date: 20130131
  Receipt Date: 20130131
  Transmission Date: 20140127
  Serious: No
  Sender: FDA-Public Use
  Company Number: US-ABBOTT-12P-163-1002266-00

PATIENT
  Age: 39 Year
  Sex: Male

DRUGS (6)
  1. HUMIRA [Suspect]
     Indication: COLITIS ULCERATIVE
     Route: 058
     Dates: start: 20120628
  2. PAXIL [Concomitant]
     Indication: DEPRESSION
  3. PAXIL [Concomitant]
     Indication: ANXIETY
  4. PRILOSEC [Concomitant]
     Indication: ULCER
     Dosage: PILL
  5. GLYBURIDE [Concomitant]
     Indication: DIABETES MELLITUS
     Dosage: PILL
  6. LISINOPRIL [Concomitant]
     Indication: HYPERTENSION

REACTIONS (1)
  - Drug administration error [Recovered/Resolved]
